FAERS Safety Report 4363396-5 (Version None)
Quarter: 2004Q2

REPORT INFORMATION
  Report Type: 
  Country: None (occurrence: None)
  Receive Date: 20040524
  Receipt Date: 20040513
  Transmission Date: 20050107
  Serious: Yes (Other)
  Sender: FDA-Public Use
  Company Number: US-GLAXOSMITHKLINE-A0511412A

PATIENT
  Age: 30 Year
  Sex: Female

DRUGS (7)
  1. LAMICTAL [Suspect]
     Indication: BIPOLAR DISORDER
     Dosage: 300MG PER DAY
     Route: 048
     Dates: start: 20031215
  2. KLONOPIN [Concomitant]
     Dosage: 1MG PER DAY
  3. EFFEXOR [Concomitant]
     Dosage: 75MG PER DAY
  4. ZYPREXA [Concomitant]
     Dosage: 5MG PER DAY
     Dates: end: 20040305
  5. ABILIFY [Concomitant]
     Dosage: 10MG PER DAY
  6. FOLIC ACID [Concomitant]
  7. MULTI-VITAMINS [Concomitant]

REACTIONS (1)
  - ABORTION SPONTANEOUS [None]
